FAERS Safety Report 9183263 (Version 1)
Quarter: 2012Q4

REPORT INFORMATION
  Report Type: 
  Country: GB (occurrence: GB)
  Receive Date: 20121030
  Receipt Date: 20121030
  Transmission Date: 20130627
  Serious: Yes (Other)
  Sender: FDA-Public Use
  Company Number: GB-MERCK-1210GBR012843

PATIENT
  Age: 72 Year
  Sex: Male
  Weight: 89 kg

DRUGS (9)
  1. SIMVASTATIN [Suspect]
     Indication: BLOOD CHOLESTEROL INCREASED
     Dosage: 40 mg, qd
     Route: 048
     Dates: start: 20120904
  2. SIMVASTATIN [Suspect]
     Indication: TRANSIENT ISCHAEMIC ATTACK
  3. ASPIRIN [Concomitant]
     Indication: PROPHYLAXIS
     Dosage: 75 mg, UNK
     Route: 048
     Dates: start: 20050907
  4. CETIRIZINE HYDROCHLORIDE [Concomitant]
     Indication: CARDIAC FAILURE
     Dosage: 10 mg, prn
     Route: 048
     Dates: start: 2000
  5. FUROSEMIDE [Concomitant]
     Indication: OEDEMA
     Dosage: 80 mg, UNK
     Route: 048
     Dates: start: 20100527
  6. ACETAMINOPHEN [Concomitant]
     Indication: PAIN
     Dosage: 1 g, qid
     Route: 048
     Dates: start: 20120913
  7. RAMIPRIL [Concomitant]
     Indication: HYPERTENSION
     Dosage: 5 mg, UNK
     Route: 048
     Dates: start: 20100701
  8. RAMIPRIL [Concomitant]
     Indication: OEDEMA
  9. TRAMADOL HYDROCHLORIDE [Concomitant]
     Indication: PAIN
     Dosage: 50 mg, tid
     Route: 048
     Dates: start: 20120913

REACTIONS (1)
  - Increased upper airway secretion [Recovered/Resolved]
